FAERS Safety Report 12729986 (Version 1)
Quarter: 2016Q3

REPORT INFORMATION
  Report Type: Spontaneous
  Country: HU (occurrence: HU)
  Receive Date: 20160909
  Receipt Date: 20160909
  Transmission Date: 20161109
  Serious: Yes (Life-Threatening, Other)
  Sender: FDA-Public Use
  Company Number: HU-ABBVIE-16P-076-1720006-00

PATIENT
  Age: 59 Year
  Sex: Male

DRUGS (1)
  1. SEVOFRANE [Suspect]
     Active Substance: SEVOFLURANE
     Indication: ANAESTHESIA
     Route: 055

REACTIONS (9)
  - Hypercapnia [Unknown]
  - Hyperthermia malignant [Recovered/Resolved]
  - Hepatic function abnormal [Unknown]
  - Hepatic rupture [Unknown]
  - Body temperature increased [Unknown]
  - Sepsis [Unknown]
  - Renal impairment [Unknown]
  - Intra-abdominal fluid collection [Unknown]
  - Blood creatine phosphokinase increased [Unknown]
